FAERS Safety Report 5296604-7 (Version None)
Quarter: 2007Q2

REPORT INFORMATION
  Report Type: 
  Country: None (occurrence: None)
  Receive Date: 20070413
  Receipt Date: 20070402
  Transmission Date: 20071010
  Serious: Yes (Death)
  Sender: FDA-Public Use
  Company Number: KR-PFIZER INC-2006144236

PATIENT
  Sex: Female
  Weight: 45 kg

DRUGS (6)
  1. ZYVOX [Suspect]
     Indication: ENTEROCOCCAL INFECTION
     Route: 042
     Dates: start: 20060430, end: 20060514
  2. ZYVOX [Suspect]
     Indication: PNEUMONIA
  3. OFLOXACIN [Concomitant]
     Indication: PNEUMONIA
     Route: 048
     Dates: start: 20060420, end: 20060516
  4. VORICONAZOLE [Concomitant]
     Indication: ASPERGILLOSIS
     Route: 048
     Dates: start: 20060422, end: 20060516
  5. MEROPENEM [Concomitant]
     Indication: PNEUMONIA
     Route: 042
     Dates: start: 20060506, end: 20060516
  6. TEICOPLANIN [Concomitant]
     Indication: PNEUMONIA
     Route: 042
     Dates: start: 20060420, end: 20060516

REACTIONS (1)
  - SEPSIS [None]
